FAERS Safety Report 8096525-0 (Version None)
Quarter: 2012Q1

REPORT INFORMATION
  Report Type: 
  Country: None (occurrence: None)
  Receive Date: 20120129
  Receipt Date: 20111202
  Transmission Date: 20120608
  Serious: No
  Sender: FDA-Public Use
  Company Number: US-ABBOTT-11P-163-0880877-00

PATIENT
  Sex: Female
  Weight: 69.008 kg

DRUGS (1)
  1. HUMIRA [Suspect]
     Indication: RHEUMATOID ARTHRITIS

REACTIONS (9)
  - SINUSITIS [None]
  - COUGH [None]
  - FACIAL PAIN [None]
  - HEADACHE [None]
  - OROPHARYNGEAL PAIN [None]
  - SINUS DISORDER [None]
  - EAR PAIN [None]
  - PYREXIA [None]
  - PARANASAL SINUS HYPERSECRETION [None]
